FAERS Safety Report 9158051 (Version 1)
Quarter: 2013Q1

REPORT INFORMATION
  Report Type: Spontaneous
  Country: US (occurrence: None)
  Receive Date: 20130211
  Receipt Date: 20130211
  Transmission Date: 20140127
  Serious: Yes (Hospitalization)
  Sender: FDA-Public Use
  Company Number: 2013-00040

PATIENT
  Age: 65 Year
  Sex: Male

DRUGS (2)
  1. UNSPECIFIED ZICAM PRODUCT [Suspect]
     Indication: NASOPHARYNGITIS
     Dates: start: 20121225, end: 20130110
  2. ALBUTEROL, MUCINEX, COLD-EEZE, DAYQUIL (ACETAMINOPHEN/DEXTROMETHORPHAN/PSEUDOEPHEDRINE), UNSPECIFIED PROBIOTIC SUPPLEMENT [Concomitant]

REACTIONS (3)
  - Electrocardiogram ST segment abnormal [None]
  - Blood pressure systolic increased [None]
  - Atrial fibrillation [None]
